FAERS Safety Report 14561677 (Version 1)
Quarter: 2018Q1

REPORT INFORMATION
  Report Type: Spontaneous
  Country: US (occurrence: US)
  Receive Date: 20180221
  Receipt Date: 20180221
  Transmission Date: 20180509
  Serious: No
  Sender: FDA-Public Use
  Company Number: None

PATIENT
  Age: 67 Year
  Sex: Female

DRUGS (1)
  1. VANCOMYCIN 1000 MG FRESENIUS KABI [Suspect]
     Active Substance: VANCOMYCIN HYDROCHLORIDE
     Indication: POST PROCEDURAL INFECTION
     Route: 042
     Dates: start: 20180208, end: 20180219

REACTIONS (1)
  - Blood creatinine increased [None]

NARRATIVE: CASE EVENT DATE: 20180219
